FAERS Safety Report 18968889 (Version 1)
Quarter: 2021Q1

REPORT INFORMATION
  Report Type: Spontaneous
  Country: US (occurrence: US)
  Receive Date: 20210304
  Receipt Date: 20210304
  Transmission Date: 20210420
  Serious: No
  Sender: FDA-Public Use
  Company Number: None

PATIENT
  Age: 73 Year
  Sex: Male
  Weight: 92.7 kg

DRUGS (10)
  1. SOMATULINE DEPOT [Concomitant]
     Active Substance: LANREOTIDE ACETATE
  2. LOSARTAN POTASSIUM. [Concomitant]
     Active Substance: LOSARTAN POTASSIUM
  3. CAPECITABINE. [Suspect]
     Active Substance: CAPECITABINE
     Indication: RENAL CANCER
     Dosage: ?          OTHER FREQUENCY:2 TAB AM 3 TAB PM;?
     Route: 048
     Dates: start: 20200325
  4. AMLODIPINE BESYLATE. [Concomitant]
     Active Substance: AMLODIPINE BESYLATE
  5. THERAGRAN?M [Concomitant]
     Active Substance: VITAMINS
  6. VITAMIN D3 [Concomitant]
     Active Substance: CHOLECALCIFEROL
  7. CAPECITABINE. [Suspect]
     Active Substance: CAPECITABINE
     Indication: BONE CANCER
     Dosage: ?          OTHER FREQUENCY:2 TAB AM 3 TAB PM;?
     Route: 048
     Dates: start: 20200325
  8. VITAMIN C [Concomitant]
     Active Substance: ASCORBIC ACID
  9. XGEVA [Concomitant]
     Active Substance: DENOSUMAB
  10. METFORMIN HCL [Concomitant]
     Active Substance: METFORMIN HYDROCHLORIDE

REACTIONS (1)
  - Palmar-plantar erythrodysaesthesia syndrome [None]

NARRATIVE: CASE EVENT DATE: 20210304
